FAERS Safety Report 4951788-2 (Version None)
Quarter: 2006Q1

REPORT INFORMATION
  Report Type: 
  Country: None (occurrence: None)
  Receive Date: 20060323
  Receipt Date: 20060314
  Transmission Date: 20060701
  Serious: Yes (Hospitalization)
  Sender: FDA-Public Use
  Company Number: 2006CG00485

PATIENT
  Age: 78 Year
  Sex: Male

DRUGS (5)
  1. NEXIUM [Suspect]
     Route: 048
  2. TRIATEC [Suspect]
     Route: 048
  3. TRIATEC [Suspect]
     Route: 048
  4. TRIATEC [Suspect]
     Route: 048
  5. PLAVIX [Suspect]
     Route: 048

REACTIONS (2)
  - FALL [None]
  - ORTHOSTATIC HYPOTENSION [None]
